FAERS Safety Report 11019639 (Version 2)
Quarter: 2015Q2

REPORT INFORMATION
  Report Type: Spontaneous
  Country: US (occurrence: US)
  Receive Date: 20150412
  Receipt Date: 20150525
  Transmission Date: 20150821
  Serious: No
  Sender: FDA-Public Use
  Company Number: US-JNJFOC-20130701551

PATIENT
  Age: 6 Decade
  Sex: Female

DRUGS (2)
  1. LEVAQUIN [Suspect]
     Active Substance: LEVOFLOXACIN
     Indication: PRODUCT USED FOR UNKNOWN INDICATION
     Route: 048
     Dates: start: 20130624, end: 20130629
  2. PROBIOTIC [Concomitant]
     Active Substance: PROBIOTICS NOS
     Indication: ANTIDIARRHOEAL SUPPORTIVE CARE
     Route: 065
     Dates: start: 20130624

REACTIONS (3)
  - Drug dispensing error [Unknown]
  - Tendonitis [Not Recovered/Not Resolved]
  - Overdose [Unknown]

NARRATIVE: CASE EVENT DATE: 20130624
